FAERS Safety Report 8501868-X (Version None)
Quarter: 2012Q3

REPORT INFORMATION
  Report Type: 
  Country: None (occurrence: None)
  Receive Date: 20120711
  Receipt Date: 20120705
  Transmission Date: 20120928
  Serious: Yes (Hospitalization, Other)
  Sender: FDA-Public Use
  Company Number: PHHY2012CA058456

PATIENT
  Sex: Male

DRUGS (10)
  1. RAMIPRIL [Concomitant]
     Dosage: 10 MG, QD
  2. CRESTOR [Concomitant]
     Dosage: 20 MG, QD
  3. ZOLEDRONOC ACID [Suspect]
     Dosage: 5 MG, UNK
     Route: 042
     Dates: start: 20120614
  4. VITALUX [Concomitant]
     Dosage: UNK UKN, UNK
  5. ZOLEDRONOC ACID [Suspect]
     Indication: OSTEOPOROSIS
     Dosage: 5 MG, UNK
     Route: 042
     Dates: start: 20110613
  6. ADALAT CC [Concomitant]
     Dosage: 60 MG, QD
  7. NIFEDIPINE [Concomitant]
     Dosage: UNK UKN, UNK
  8. CALCIUM [Concomitant]
     Dosage: UNK UKN, UNK
  9. VITAMIN D [Concomitant]
     Dosage: UNK UKN, UNK
  10. RABEPRAZOLE SODIUM [Concomitant]
     Dosage: 20 MG, QD

REACTIONS (15)
  - DEHYDRATION [None]
  - GASTRIC MUCOSAL LESION [None]
  - NEPHROPATHY [None]
  - NAUSEA [None]
  - VOMITING [None]
  - URINE OUTPUT DECREASED [None]
  - CARDIAC MURMUR [None]
  - VASCULAR CALCIFICATION [None]
  - BLOOD PRESSURE DECREASED [None]
  - RENAL FAILURE ACUTE [None]
  - FATIGUE [None]
  - GASTRIC POLYPS [None]
  - PRURITUS [None]
  - NOCTURIA [None]
  - CACHEXIA [None]
